FAERS Safety Report 9359432 (Version 1)
Quarter: 2013Q2

REPORT INFORMATION
  Report Type: Report from Study
  Country: US (occurrence: US)
  Receive Date: 20130620
  Receipt Date: 20130620
  Transmission Date: 20140414
  Serious: Yes (Other)
  Sender: FDA-Public Use
  Company Number: US-ABBOTT-13P-163-1093722-00

PATIENT
  Age: 24 Year
  Sex: Female
  Weight: 52.66 kg

DRUGS (7)
  1. HUMIRA [Suspect]
     Indication: CROHN^S DISEASE
     Dosage: ONE DOSE
     Route: 058
     Dates: start: 20130509, end: 20130509
  2. HUMIRA [Suspect]
     Dosage: ONE DOSE
     Dates: start: 20130523, end: 20130523
  3. HUMIRA [Suspect]
     Dates: start: 20130606
  4. ASACOL [Concomitant]
     Indication: CROHN^S DISEASE
  5. BENTYL [Concomitant]
     Indication: ABDOMINAL RIGIDITY
  6. LORTAB [Concomitant]
     Indication: PRODUCT USED FOR UNKNOWN INDICATION
  7. TYLENOL [Concomitant]
     Indication: PAIN

REACTIONS (13)
  - Haemoglobin decreased [Unknown]
  - Heart rate increased [Recovered/Resolved]
  - Pyrexia [Not Recovered/Not Resolved]
  - Weight decreased [Not Recovered/Not Resolved]
  - Abdominal pain upper [Not Recovered/Not Resolved]
  - Haematochezia [Not Recovered/Not Resolved]
  - Haematochezia [Not Recovered/Not Resolved]
  - Nausea [Not Recovered/Not Resolved]
  - Frequent bowel movements [Not Recovered/Not Resolved]
  - Nasopharyngitis [Not Recovered/Not Resolved]
  - Oropharyngeal pain [Not Recovered/Not Resolved]
  - Cough [Not Recovered/Not Resolved]
  - Productive cough [Not Recovered/Not Resolved]
